FAERS Safety Report 7900412-5 (Version None)
Quarter: 2011Q4

REPORT INFORMATION
  Report Type: 
  Country: None (occurrence: None)
  Receive Date: 20111108
  Receipt Date: 20111102
  Transmission Date: 20120403
  Serious: No
  Sender: FDA-Public Use
  Company Number: US-PFIZER INC-2011267513

PATIENT
  Sex: Female

DRUGS (4)
  1. CADUET [Suspect]
  2. CADUET [Suspect]
     Indication: BLOOD PRESSURE ABNORMAL
  3. CADUET [Suspect]
     Indication: HYPERTENSION
     Dosage: 10 MG/20 MG
     Dates: end: 20111001
  4. CADUET [Suspect]
     Indication: BLOOD CHOLESTEROL INCREASED

REACTIONS (4)
  - PAIN [None]
  - MALAISE [None]
  - INJURY [None]
  - HEADACHE [None]
